FAERS Safety Report 8934197 (Version 2)
Quarter: 2013Q2

REPORT INFORMATION
  Report Type: Report from Study
  Country: CA (occurrence: CA)
  Receive Date: 20121129
  Receipt Date: 20130628
  Transmission Date: 20140414
  Serious: Yes (Hospitalization, Other)
  Sender: FDA-Public Use
  Company Number: CA-ROCHE-1161713

PATIENT
  Age: 81 Year
  Sex: Female

DRUGS (2)
  1. RANIBIZUMAB [Suspect]
     Indication: AGE-RELATED MACULAR DEGENERATION
     Dosage: 0.05 CC
     Route: 050
     Dates: start: 20080508
  2. RANIBIZUMAB [Suspect]
     Dosage: 0.05CC
     Route: 050
     Dates: start: 20120802

REACTIONS (2)
  - Myocardial infarction [Recovering/Resolving]
  - Cardiac failure [Unknown]
